FAERS Safety Report 23233075 (Version 2)
Quarter: 2023Q4

REPORT INFORMATION
  Report Type: Spontaneous
  Country: IT (occurrence: None)
  Receive Date: 20231128
  Receipt Date: 20231201
  Transmission Date: 20240110
  Serious: Yes (Hospitalization)
  Sender: FDA-Public Use
  Company Number: None

PATIENT
  Age: 50 Year
  Sex: Male

DRUGS (16)
  1. ENOXAPARIN [Concomitant]
     Active Substance: ENOXAPARIN
     Dosage: 4000 UI/DIE ()
  2. LATTULAC [Concomitant]
     Dosage: 40 ML/DIE ()
  3. FOLINA [Concomitant]
     Dosage: 5 MG/DIE ()
  4. TAVOR [Concomitant]
     Dosage: 2,5 MG/DIE ()
  5. DOMPERIDONE [Concomitant]
     Active Substance: DOMPERIDONE
     Dosage: 10 MG/DIE ()
  6. FERROUS SULFATE [Concomitant]
     Active Substance: FERROUS SULFATE
     Dosage: 80 MG/DIE ()
  7. LORMETAZEPAM [Concomitant]
     Active Substance: LORMETAZEPAM
     Dosage: 2,5 MG/ML 20 GTT/DIE ()
  8. LEVOFLOXACIN [Concomitant]
     Active Substance: LEVOFLOXACIN
     Dosage: 750 MG/DIE ()
  9. METHYLPREDNISOLONE [Concomitant]
     Active Substance: METHYLPREDNISOLONE
     Dosage: 40 MG/DIE ()
  10. HALOPERIDOL [Concomitant]
     Active Substance: HALOPERIDOL
  11. FUROSEMIDE [Concomitant]
     Active Substance: FUROSEMIDE
     Dosage: 25 MG/DIE ()
     Route: 048
  12. ACETYLCYSTEINE [Concomitant]
     Active Substance: ACETYLCYSTEINE
     Dosage: 600 MG/DIE ()
  13. PROMAZINA [Concomitant]
     Active Substance: PROMAZINE
     Dosage: 40 MG/ML 10 GTT AB (MAX 2/DIE) ()
  14. CHOLECALCIFEROL [Concomitant]
     Active Substance: CHOLECALCIFEROL
     Dosage: 1 FL 100.000 UI/MESI ALTERNI ()
  15. PIPERACILLIN SODIUM\TAZOBACTAM SODIUM [Suspect]
     Active Substance: PIPERACILLIN SODIUM\TAZOBACTAM SODIUM
     Indication: Pneumonitis
     Dosage: PIPERACILLIN TAZOBACTAM 4 G + 0,5 G X 1/DIE
     Route: 042
     Dates: start: 20230728, end: 20230807
  16. VALPROATE SODIUM [Concomitant]
     Active Substance: VALPROATE SODIUM

REACTIONS (1)
  - Haemolytic anaemia [Recovering/Resolving]

NARRATIVE: CASE EVENT DATE: 20230807
